FAERS Safety Report 16688372 (Version 1)
Quarter: 2019Q3

REPORT INFORMATION
  Report Type: Spontaneous
  Country: US (occurrence: US)
  Receive Date: 20190809
  Receipt Date: 20190809
  Transmission Date: 20191004
  Serious: Yes (Death)
  Sender: FDA-Public Use
  Company Number: US-PFIZER INC-2019337302

PATIENT
  Age: 77 Year
  Sex: Female

DRUGS (1)
  1. TRANEXAMIC ACID. [Suspect]
     Active Substance: TRANEXAMIC ACID
     Indication: KNEE ARTHROPLASTY
     Dosage: 1 MG, UNK

REACTIONS (3)
  - Pulmonary embolism [Fatal]
  - Product use in unapproved indication [Unknown]
  - Off label use [Unknown]
